FAERS Safety Report 12435418 (Version 2)
Quarter: 2017Q2

REPORT INFORMATION
  Report Type: Spontaneous
  Country: US (occurrence: US)
  Receive Date: 20160603
  Receipt Date: 20170607
  Transmission Date: 20170830
  Serious: Yes (Other)
  Sender: FDA-Public Use
  Company Number: US-ROCHE-1648164

PATIENT
  Sex: Female

DRUGS (5)
  1. XELODA [Suspect]
     Active Substance: CAPECITABINE
     Indication: ONCOLOGIC COMPLICATION
     Dosage: 3 TABS BID
     Route: 048
     Dates: start: 20150928
  2. HERCEPTIN [Suspect]
     Active Substance: TRASTUZUMAB
     Indication: PRODUCT USED FOR UNKNOWN INDICATION
     Route: 042
  3. XELODA [Suspect]
     Active Substance: CAPECITABINE
     Dosage: 7 DAYS ON 7 DAYS OFF
     Route: 048
     Dates: start: 20160614
  4. XELODA [Suspect]
     Active Substance: CAPECITABINE
     Route: 048
     Dates: start: 20151002
  5. EXEMESTANE. [Concomitant]
     Active Substance: EXEMESTANE
     Route: 048
     Dates: start: 20151002

REACTIONS (10)
  - Fatigue [Not Recovered/Not Resolved]
  - Weight decreased [Unknown]
  - Nausea [Unknown]
  - Vomiting [Recovered/Resolved]
  - Renal impairment [Unknown]
  - Nail disorder [Unknown]
  - Decreased appetite [Unknown]
  - Vomiting [Unknown]
  - Blister [Unknown]
  - Abdominal pain upper [Unknown]
